FAERS Safety Report 16042499 (Version 2)
Quarter: 2019Q1

REPORT INFORMATION
  Report Type: Report from Study
  Country: None (occurrence: DE)
  Receive Date: 20190306
  Receipt Date: 20190320
  Transmission Date: 20190418
  Serious: Yes (Hospitalization, Other)
  Sender: FDA-Public Use
  Company Number: DE-ABBVIE-19S-062-2683692-00

PATIENT
  Age: 72 Year
  Sex: Female

DRUGS (10)
  1. DUODOPA [Suspect]
     Active Substance: CARBIDOPA\LEVODOPA
     Dosage: MD 5.5ML CRD 5.1ML/H CRN 3.7ML/H ED 4ML
     Route: 050
     Dates: end: 201902
  2. SEROQUEL [Concomitant]
     Active Substance: QUETIAPINE FUMARATE
     Indication: RESTLESSNESS
     Route: 065
     Dates: start: 2014
  3. DUODOPA [Suspect]
     Active Substance: CARBIDOPA\LEVODOPA
     Indication: PARKINSON^S DISEASE
     Dosage: MD 5.5ML  CRD 5ML/H  CRN 3.7ML/H  ED 4ML
     Route: 050
     Dates: start: 20060907
  4. LYRICA [Concomitant]
     Active Substance: PREGABALIN
     Indication: DEPRESSION
     Route: 048
     Dates: start: 2011
  5. PANTOPRAZOL [Concomitant]
     Active Substance: PANTOPRAZOLE SODIUM
     Indication: PRODUCT USED FOR UNKNOWN INDICATION
  6. MIRTAZAPIN [Concomitant]
     Active Substance: MIRTAZAPINE
     Indication: DEPRESSION
     Route: 048
     Dates: start: 2011
  7. VENLAFAXIN [Concomitant]
     Active Substance: VENLAFAXINE HYDROCHLORIDE
     Indication: DEPRESSION
     Route: 048
     Dates: start: 2011
  8. DUODOPA [Suspect]
     Active Substance: CARBIDOPA\LEVODOPA
     Dosage: MD 4ML CRD 4.8ML/H CRN 3.7ML/H ED 4ML
     Route: 050
  9. LYRICA [Concomitant]
     Active Substance: PREGABALIN
     Indication: PAIN
  10. DIAZEPAM. [Concomitant]
     Active Substance: DIAZEPAM
     Indication: RESTLESSNESS
     Dosage: 400 UNKNOWN, AS REQUIRED; DROPS
     Route: 048
     Dates: start: 20190124

REACTIONS (41)
  - Formication [Unknown]
  - Exercise tolerance decreased [Recovered/Resolved]
  - Splenic cyst [Unknown]
  - Stoma site inflammation [Recovered/Resolved]
  - Hyperkinesia [Unknown]
  - General physical health deterioration [Unknown]
  - Postural reflex impairment [Unknown]
  - Gait disturbance [Unknown]
  - Hallucination, visual [Unknown]
  - Pancreatic duct dilatation [Unknown]
  - Spinal osteoarthritis [Unknown]
  - Stoma site discharge [Recovered/Resolved]
  - Hallucination [Recovered/Resolved]
  - Product tampering [Unknown]
  - Diverticulum [Unknown]
  - Muscle atrophy [Unknown]
  - Weight decreased [Unknown]
  - Stoma site inflammation [Recovered/Resolved]
  - Stoma site inflammation [Recovered/Resolved]
  - Abnormal behaviour [Unknown]
  - Parkinson^s disease [Unknown]
  - Hepatic cyst [Unknown]
  - Mobility decreased [Recovered/Resolved]
  - Faecaloma [Unknown]
  - Stoma site inflammation [Recovered/Resolved]
  - Paraesthesia [Unknown]
  - Stoma site inflammation [Not Recovered/Not Resolved]
  - Hallucination, visual [Recovering/Resolving]
  - Hyperkinesia [Recovering/Resolving]
  - Aortic arteriosclerosis [Unknown]
  - Restlessness [Recovered/Resolved]
  - Osteoarthritis [Unknown]
  - Pain [Recovering/Resolving]
  - Gastrointestinal disorder [Unknown]
  - Restlessness [Unknown]
  - Stoma site inflammation [Recovered/Resolved]
  - Intra-abdominal fluid collection [Unknown]
  - Lymphadenopathy [Unknown]
  - Akathisia [Unknown]
  - Biliary dilatation [Unknown]
  - Agitation [Recovered/Resolved]

NARRATIVE: CASE EVENT DATE: 2011
